FAERS Safety Report 9602076 (Version 1)
Quarter: 2013Q4

REPORT INFORMATION
  Report Type: Spontaneous
  Country: FR (occurrence: FR)
  Receive Date: 20131007
  Receipt Date: 20131007
  Transmission Date: 20140711
  Serious: Yes (Hospitalization, Other)
  Sender: FDA-Public Use
  Company Number: FR-PFIZER INC-2013285274

PATIENT
  Age: 87 Year
  Sex: Female

DRUGS (14)
  1. RAMIPRIL [Suspect]
     Dosage: 10 MG, UNK
     Route: 065
  2. GLIMEPIRIDE [Interacting]
     Dosage: 2 MG, UNK
     Route: 065
  3. ALPRAZOLAM [Interacting]
     Dosage: 0.5 MG, UNK
     Route: 065
  4. FUROSEMIDE [Interacting]
     Dosage: 40 MG, UNK
     Route: 065
  5. BISOPROLOL FUMARATE [Interacting]
     Dosage: 5 MG, UNK
     Route: 065
  6. LORAZEPAM [Interacting]
     Dosage: 1 MG, UNK
     Route: 065
  7. ESOMEPRAZOLE [Interacting]
     Dosage: 40 MG, UNK
     Route: 048
  8. SOTALOL HYDROCHLORIDE [Interacting]
     Dosage: 80 MG, UNK
     Route: 065
  9. DOMPERIDONE [Interacting]
     Dosage: 20 MG, UNK
     Route: 065
  10. KALEORID [Interacting]
     Dosage: 1000 MG, UNK
     Route: 065
  11. ONGLYZA [Interacting]
     Dosage: 5 MG, UNK
     Route: 048
  12. STRESAM [Interacting]
     Dosage: 50 MG, UNK
     Route: 065
  13. TARDYFERON [Interacting]
     Dosage: 80 MG, UNK
     Route: 065
  14. PRADAXA [Interacting]
     Dosage: 110 MG, UNK
     Route: 065

REACTIONS (2)
  - Drug interaction [Unknown]
  - Syncope [Unknown]
